FAERS Safety Report 9729758 (Version 2)
Quarter: 2013Q4

REPORT INFORMATION
  Report Type: Spontaneous
  Country: US (occurrence: US)
  Receive Date: 20131204
  Receipt Date: 20131204
  Transmission Date: 20140711
  Serious: No
  Sender: FDA-Public Use
  Company Number: US-GILEAD-2009-0021975

PATIENT
  Sex: Male
  Weight: 63.05 kg

DRUGS (12)
  1. LETAIRIS [Suspect]
     Indication: PULMONARY ARTERIAL HYPERTENSION
     Route: 048
     Dates: start: 20090421
  2. COUMADIN [Concomitant]
  3. DILTIA XT [Concomitant]
  4. CELLCEPT [Concomitant]
  5. PREDNISONE [Concomitant]
  6. METFORMIN HCL [Concomitant]
  7. SIMVASTATIN [Concomitant]
  8. MIRTAZAPINE [Concomitant]
  9. OMEPRAZOLE [Concomitant]
  10. DOCUSATE-PLUS [Concomitant]
  11. BL VITAMIN B12 [Concomitant]
  12. CENTRUM [Concomitant]

REACTIONS (2)
  - Headache [Unknown]
  - Abdominal pain upper [Unknown]
